FAERS Safety Report 9670388 (Version 4)
Quarter: 2014Q1

REPORT INFORMATION
  Report Type: Report from Study
  Country: AU (occurrence: AU)
  Receive Date: 20131105
  Receipt Date: 20140313
  Transmission Date: 20141002
  Serious: Yes (Hospitalization)
  Sender: FDA-Public Use
  Company Number: AU-AMGEN-AUSCT2013076866

PATIENT
  Age: 43 Year
  Sex: Male

DRUGS (3)
  1. PANITUMUMAB [Suspect]
     Indication: BILE DUCT CANCER
     Dosage: 530 MG, QD
     Route: 042
     Dates: start: 20131014, end: 20131021
  2. CISPLATIN [Concomitant]
  3. GEMCITABINE                        /01215702/ [Concomitant]

REACTIONS (2)
  - Rectal haemorrhage [Not Recovered/Not Resolved]
  - Rash pustular [Not Recovered/Not Resolved]
